FAERS Safety Report 7320750-7 (Version None)
Quarter: 2011Q1

REPORT INFORMATION
  Report Type: 
  Country: None (occurrence: None)
  Receive Date: 20110228
  Receipt Date: 20110223
  Transmission Date: 20110831
  Serious: Yes (Life-Threatening)
  Sender: FDA-Public Use
  Company Number: PL-ROCHE-754082

PATIENT
  Sex: Female
  Weight: 48 kg

DRUGS (8)
  1. PROTEVASC SR [Concomitant]
     Dosage: FREQUENCY:1X1
  2. ACARD [Concomitant]
     Dosage: FREQUENCY:1X1
  3. NAKLOFEN [Concomitant]
     Dosage: FREQUENCY:1X1 CAPS
  4. ROACTEMRA [Suspect]
     Indication: RHEUMATOID ARTHRITIS
     Route: 042
     Dates: start: 20101217
  5. HELICID [Concomitant]
     Dosage: FREQUENCY:20 MGX1
  6. EUTHYROX [Concomitant]
     Dosage: FREQUENCY:1X
  7. ROACTEMRA [Suspect]
     Dosage: HALF OF THE RECOMMENDED DOSE
     Route: 042
     Dates: start: 20110114, end: 20110114
  8. BISOHEXAL [Concomitant]
     Dosage: FREQUENCY:2X2.5 MG

REACTIONS (5)
  - SOMNOLENCE [None]
  - DIZZINESS [None]
  - PRURITUS [None]
  - HYPOTONIA [None]
  - CHEST DISCOMFORT [None]
